FAERS Safety Report 9350973 (Version 1)
Quarter: 2013Q2

REPORT INFORMATION
  Report Type: Other
  Country: GB (occurrence: GB)
  Receive Date: 20130617
  Receipt Date: 20130617
  Transmission Date: 20140414
  Serious: Yes (Hospitalization, Other)
  Sender: FDA-Public Use
  Company Number: GB-PERRIGO-13GB006303

PATIENT
  Age: 27 Year
  Sex: Male

DRUGS (1)
  1. IBUPROFEN 16028/0013 200 MG [Suspect]
     Indication: PRODUCT USED FOR UNKNOWN INDICATION
     Dosage: UNK
     Route: 065

REACTIONS (2)
  - Coma [Recovering/Resolving]
  - Stevens-Johnson syndrome [Unknown]
